FAERS Safety Report 6411844-9 (Version None)
Quarter: 2009Q4

REPORT INFORMATION
  Report Type: 
  Country: None (occurrence: None)
  Receive Date: 20091020
  Receipt Date: 20061101
  Transmission Date: 20100525
  Serious: Yes (Hospitalization)
  Sender: FDA-Public Use
  Company Number: 2009009196

PATIENT
  Age: 51 Year
  Sex: Female
  Weight: 66.2252 kg

DRUGS (13)
  1. ACTIQ [Suspect]
     Indication: MIGRAINE
     Dosage: 600 MCG, BU; 600 MCG, BU
     Route: 002
     Dates: end: 20061022
  2. ACTIQ [Suspect]
     Indication: MIGRAINE
     Dosage: 600 MCG, BU; 600 MCG, BU
     Route: 002
     Dates: start: 20061101
  3. WELLBUTRIN [Concomitant]
  4. LASIX [Concomitant]
  5. PREMARIN [Concomitant]
  6. MULTIVITAMIN (ERGOCALCIFEROL, ASCOBIC ACID, PYRIDOXINE HYDROCHLORIDE, [Concomitant]
  7. TOPAMAX [Concomitant]
  8. ZONEGRAN [Concomitant]
  9. SEROQUEL [Concomitant]
  10. IMITREX [Concomitant]
  11. VIVACTIL [Concomitant]
  12. SPIRONOLACTONE (SPINONOLACTONE) [Concomitant]
  13. LEXAPRO [Concomitant]

REACTIONS (8)
  - DRUG PRESCRIBING ERROR [None]
  - EPISTAXIS [None]
  - FALL [None]
  - LOSS OF CONSCIOUSNESS [None]
  - MEDICATION ERROR [None]
  - MOUTH INJURY [None]
  - MULTIPLE INJURIES [None]
  - OEDEMA [None]
